FAERS Safety Report 7537618-3 (Version None)
Quarter: 2011Q2

REPORT INFORMATION
  Report Type: 
  Country: None (occurrence: None)
  Receive Date: 20110609
  Receipt Date: 20070704
  Transmission Date: 20111010
  Serious: Yes (Death, Other)
  Sender: FDA-Public Use
  Company Number: PHFR2007GB01930

PATIENT
  Sex: Male

DRUGS (9)
  1. BRICANYL [Concomitant]
     Indication: RESPIRATORY DISORDER
  2. HYOSCINE HYDROBROMIDE [Concomitant]
     Dosage: 600MCG / DAY
     Route: 048
  3. THIAMINE [Concomitant]
     Indication: ALCOHOL USE
     Dosage: 100MG / DAY
     Route: 048
  4. SYMBICORT [Concomitant]
     Indication: RESPIRATORY DISORDER
  5. TRIHEXYPHENIDYL HCL [Concomitant]
     Indication: EXTRAPYRAMIDAL DISORDER
     Dosage: 2MG / DAY
     Route: 048
  6. BAMBUTEROL HYDROCHLORIDE [Concomitant]
     Indication: RESPIRATORY DISORDER
     Dosage: 20MG /DAY
     Route: 048
  7. FOLIC ACID [Concomitant]
     Dosage: 5MG / DAY
     Route: 048
  8. CLOZAPINE [Suspect]
     Indication: BIPOLAR DISORDER
     Dosage: 500 MG, QD
     Route: 048
     Dates: start: 20040728
  9. DEPAKOTE [Concomitant]
     Indication: BIPOLAR DISORDER
     Dosage: 2G / DAY
     Route: 048

REACTIONS (7)
  - HYPERTENSION [None]
  - DYSPNOEA [None]
  - CARDIAC FAILURE CHRONIC [None]
  - RESPIRATORY DISORDER [None]
  - MYOCARDIAL ISCHAEMIA [None]
  - ABASIA [None]
  - PULMONARY OEDEMA [None]
